FAERS Safety Report 4981231-9 (Version None)
Quarter: 2006Q1

REPORT INFORMATION
  Report Type: 
  Country: None (occurrence: None)
  Receive Date: 20060227
  Receipt Date: 20050407
  Transmission Date: 20060701
  Serious: Yes (Disabling)
  Sender: FDA-Public Use
  Company Number: WAES 0504USA00923

PATIENT
  Age: 71 Year
  Sex: Female

DRUGS (5)
  1. ZOCOR [Suspect]
     Indication: HYPERLIPIDAEMIA
     Dosage: 20 MG/DAILY/PO
     Route: 048
     Dates: start: 20050317, end: 20050324
  2. ACCUPRIL [Concomitant]
  3. NORVASC [Concomitant]
  4. ASPIRIN [Concomitant]
  5. ATENOLOL [Concomitant]

REACTIONS (1)
  - MYALGIA [None]
